FAERS Safety Report 15256441 (Version 1)
Quarter: 2018Q3

REPORT INFORMATION
  Report Type: Spontaneous
  Country: US (occurrence: US)
  Receive Date: 20180808
  Receipt Date: 20180808
  Transmission Date: 20181010
  Serious: Yes (Other)
  Sender: FDA-Public Use
  Company Number: US-MYLANLABS-2018M1059819

PATIENT
  Age: 40 Year
  Sex: Female

DRUGS (1)
  1. BUPIVACAINE. [Suspect]
     Active Substance: BUPIVACAINE
     Indication: NERVE BLOCK
     Dosage: 10ML OF BUPIVACAINE 0.5% AT INCREMENTS OF 1ML AFTER NEGATIVE ASPIRATION
     Route: 050

REACTIONS (1)
  - Muscle spasms [Recovered/Resolved]
